FAERS Safety Report 9366045 (Version 1)
Quarter: 2013Q2

REPORT INFORMATION
  Report Type: Spontaneous
  Country: AU (occurrence: AU)
  Receive Date: 20130625
  Receipt Date: 20130625
  Transmission Date: 20140414
  Serious: Yes (Death, Hospitalization)
  Sender: FDA-Public Use
  Company Number: AU-ROCHE-1239783

PATIENT
  Sex: Male

DRUGS (1)
  1. LUCENTIS [Suspect]
     Indication: AGE-RELATED MACULAR DEGENERATION
     Route: 050
     Dates: start: 20100510

REACTIONS (5)
  - Cerebral fungal infection [Fatal]
  - Hypertension [Unknown]
  - Depression [Unknown]
  - Ear infection [Unknown]
  - Alveolar osteitis [Unknown]
